FAERS Safety Report 11253263 (Version 1)
Quarter: 2015Q3

REPORT INFORMATION
  Report Type: Spontaneous
  Country: US (occurrence: US)
  Receive Date: 20150709
  Receipt Date: 20150709
  Transmission Date: 20151125
  Serious: No
  Sender: FDA-Public Use
  Company Number: US-TEVA-506019USA

PATIENT
  Age: 51 Year
  Sex: Female

DRUGS (6)
  1. ADVIL [Concomitant]
     Active Substance: IBUPROFEN
  2. VENLAFAXINE [Suspect]
     Active Substance: VENLAFAXINE HYDROCHLORIDE
     Indication: DEPRESSION
     Dates: end: 20140808
  3. WARFARIN [Concomitant]
     Active Substance: WARFARIN
     Dosage: 8 MILLIGRAM DAILY; TUES-THURS
  4. IBUPROFEN. [Concomitant]
     Active Substance: IBUPROFEN
  5. DOFETIDE [Concomitant]
     Dosage: 1000 MILLIGRAM DAILY;
  6. WARFARIN [Concomitant]
     Active Substance: WARFARIN
     Dosage: 10 MILLIGRAM DAILY; MON-WED-FRI

REACTIONS (1)
  - Arrhythmia [Unknown]

NARRATIVE: CASE EVENT DATE: 201312
